FAERS Safety Report 18842120 (Version 1)
Quarter: 2021Q1

REPORT INFORMATION
  Report Type: Spontaneous
  Country: US (occurrence: US)
  Receive Date: 20210204
  Receipt Date: 20210204
  Transmission Date: 20210419
  Serious: Yes (Death, Other)
  Sender: FDA-Public Use
  Company Number: US-SA-2021SA031216

PATIENT

DRUGS (1)
  1. ZANTAC [Suspect]
     Active Substance: RANITIDINE HYDROCHLORIDE
     Dates: start: 2001, end: 201912

REACTIONS (3)
  - Nasopharyngeal cancer [Fatal]
  - Oesophageal carcinoma [Fatal]
  - Hepatic cancer [Fatal]
